FAERS Safety Report 13753773 (Version 1)
Quarter: 2017Q3

REPORT INFORMATION
  Report Type: Report from Study
  Country: KR (occurrence: KR)
  Receive Date: 20170714
  Receipt Date: 20170714
  Transmission Date: 20171127
  Serious: Yes (Death)
  Sender: FDA-Public Use
  Company Number: KR-ROCHE-1960570

PATIENT
  Age: 74 Year
  Sex: Female

DRUGS (1)
  1. ALTEPLASE. [Suspect]
     Active Substance: ALTEPLASE
     Indication: ISCHAEMIC STROKE
     Route: 042

REACTIONS (2)
  - Neurological decompensation [Fatal]
  - Haemorrhagic transformation stroke [Fatal]
